FAERS Safety Report 11142128 (Version 1)
Quarter: 2015Q2

REPORT INFORMATION
  Report Type: Spontaneous
  Country: US (occurrence: US)
  Receive Date: 20150527
  Receipt Date: 20150527
  Transmission Date: 20150821
  Serious: No
  Sender: FDA-Public Use
  Company Number: US-MALLINCKRODT-QSC-2014-0515

PATIENT
  Age: 55 Year
  Sex: Female
  Weight: 71.66 kg

DRUGS (2)
  1. OXYGEN. [Concomitant]
     Active Substance: OXYGEN
     Dosage: UNK
  2. H.P. ACTHAR [Suspect]
     Active Substance: CORTICOTROPIN
     Indication: MULTIPLE SCLEROSIS
     Dosage: 80 UNITS, THREE TIMES PER WEEK
     Route: 030
     Dates: start: 20140725, end: 20140804

REACTIONS (3)
  - Erythema [Unknown]
  - Hypoaesthesia [Unknown]
  - Face oedema [Unknown]

NARRATIVE: CASE EVENT DATE: 20140725
